FAERS Safety Report 23453809 (Version 1)
Quarter: 2024Q1

REPORT INFORMATION
  Report Type: Spontaneous
  Country: CH (occurrence: CH)
  Receive Date: 20240129
  Receipt Date: 20240129
  Transmission Date: 20240410
  Serious: Yes (Hospitalization, Other)
  Sender: FDA-Public Use
  Company Number: None

PATIENT
  Age: 76 Year
  Sex: Male
  Weight: 66 kg

DRUGS (50)
  1. YERVOY [Suspect]
     Active Substance: IPILIMUMAB
     Indication: Lung adenocarcinoma
     Dosage: IN TOTAL
     Dates: start: 20230612, end: 20230612
  2. OPDIVO [Suspect]
     Active Substance: NIVOLUMAB
     Indication: Lung adenocarcinoma
     Dosage: CYCLICAL
     Dates: start: 20230612, end: 20231109
  3. OPDIVO [Suspect]
     Active Substance: NIVOLUMAB
     Dosage: IN TOTAL
     Dates: start: 20230906, end: 20230906
  4. OPDIVO [Suspect]
     Active Substance: NIVOLUMAB
     Dosage: IN TOTAL
     Dates: start: 20230911, end: 20230911
  5. OPDIVO [Suspect]
     Active Substance: NIVOLUMAB
     Dosage: IN TOTAL
     Dates: start: 20230927, end: 20230927
  6. FOLIC ACID [Concomitant]
     Active Substance: FOLIC ACID
     Indication: Product used for unknown indication
     Dates: start: 20231122, end: 20231221
  7. FOLIC ACID [Concomitant]
     Active Substance: FOLIC ACID
     Indication: Product used for unknown indication
     Dates: end: 20231122
  8. ASPIRIN [Concomitant]
     Active Substance: ASPIRIN
     Indication: Product used for unknown indication
     Dates: end: 20231221
  9. CALCIMAGON D3 FORTE [Concomitant]
     Indication: Product used for unknown indication
     Dosage: 1000 MG/ 800 IE
     Dates: end: 20231221
  10. FERROUS SULFATE [Concomitant]
     Active Substance: FERROUS SULFATE
     Indication: Product used for unknown indication
  11. GYNO-TARDYFERON [Concomitant]
     Indication: Product used for unknown indication
     Dates: start: 20231122, end: 20231221
  12. METOPROLOL SUCCINATE [Concomitant]
     Active Substance: METOPROLOL SUCCINATE
     Indication: Product used for unknown indication
     Dates: start: 20231206, end: 20231221
  13. METOPROLOL SUCCINATE [Concomitant]
     Active Substance: METOPROLOL SUCCINATE
     Dates: start: 20231122, end: 20231206
  14. METOPROLOL [Concomitant]
     Active Substance: METOPROLOL
     Indication: Atrial fibrillation
  15. CHOLECALCIFEROL [Concomitant]
     Active Substance: CHOLECALCIFEROL
     Indication: Product used for unknown indication
  16. CHOLECALCIFEROL [Concomitant]
     Active Substance: CHOLECALCIFEROL
     Dosage: 1 DROP = 500 IE
     Dates: start: 20231122, end: 20231130
  17. CHOLECALCIFEROL [Concomitant]
     Active Substance: CHOLECALCIFEROL
     Dosage: 1 DROP = 500 IE
     Dates: start: 20231202, end: 20231221
  18. ZOLPIDEM [Concomitant]
     Active Substance: ZOLPIDEM TARTRATE
     Indication: Product used for unknown indication
  19. ANORO ELLIPTA [Concomitant]
     Active Substance: UMECLIDINIUM BROMIDE\VILANTEROL TRIFENATATE
     Indication: Product used for unknown indication
  20. TORSEMIDE [Concomitant]
     Active Substance: TORSEMIDE
     Indication: Product used for unknown indication
     Dates: end: 20231122
  21. TORSEMIDE [Concomitant]
     Active Substance: TORSEMIDE
     Dates: start: 20231219
  22. TORSEMIDE [Concomitant]
     Active Substance: TORSEMIDE
     Dates: start: 20231216, end: 20231221
  23. ALDACTONE [Concomitant]
     Active Substance: SPIRONOLACTONE
     Indication: Product used for unknown indication
     Dates: end: 20231122
  24. GLYCERIN\MINERAL OIL\PETROLATUM [Concomitant]
     Active Substance: GLYCERIN\MINERAL OIL\PETROLATUM
     Indication: Product used for unknown indication
     Dates: start: 20231125
  25. IMAZOL [CLOTRIMAZOLE;HEXAMIDINE ISETIONATE] [Concomitant]
     Indication: Product used for unknown indication
     Dates: start: 20231211
  26. DAFALGAN [Concomitant]
     Active Substance: ACETAMINOPHEN
     Indication: Product used for unknown indication
     Dosage: AS NECESSARY
     Dates: start: 20231122, end: 20231221
  27. VALVERDE SCHLAF [Concomitant]
     Indication: Product used for unknown indication
     Dosage: AS NECESSARY
     Dates: start: 20231122
  28. IMODIUM [Concomitant]
     Active Substance: LOPERAMIDE HYDROCHLORIDE
     Indication: Product used for unknown indication
     Dosage: AS NECESSARY
     Dates: start: 20231123
  29. QUETIAPINE FUMARATE [Concomitant]
     Active Substance: QUETIAPINE FUMARATE
     Indication: Product used for unknown indication
     Dosage: AS NECESSARY
     Dates: start: 20231213
  30. METAMIZOLE [Concomitant]
     Active Substance: METAMIZOLE
     Indication: Product used for unknown indication
     Dosage: AS NECESSARY
     Dates: start: 20231210
  31. ZOLPIDEM TARTRATE [Concomitant]
     Active Substance: ZOLPIDEM TARTRATE
     Indication: Product used for unknown indication
     Dates: start: 20231122, end: 20231124
  32. MELATONIN [Concomitant]
     Active Substance: MELATONIN
     Indication: Product used for unknown indication
     Dosage: AS NECESSARY
     Dates: start: 20231125, end: 20231221
  33. RESONIUM-A (KAYEXALATE) [Concomitant]
     Indication: Product used for unknown indication
     Dates: start: 20231123, end: 20231124
  34. LASIX [Concomitant]
     Active Substance: FUROSEMIDE
     Indication: Cardiac failure
     Dosage: 20 MG/ML
     Route: 042
     Dates: start: 20231123, end: 20231129
  35. LASIX [Concomitant]
     Active Substance: FUROSEMIDE
     Dosage: 250 MG/ 25 ML
     Route: 042
     Dates: start: 20231129, end: 20231212
  36. LASIX [Concomitant]
     Active Substance: FUROSEMIDE
     Dates: start: 20231214, end: 20231215
  37. KEFZOL [Concomitant]
     Active Substance: CEFAZOLIN SODIUM
     Indication: Product used for unknown indication
     Dates: start: 20231202, end: 20231202
  38. KEFZOL [Concomitant]
     Active Substance: CEFAZOLIN SODIUM
     Dates: start: 20231216, end: 20231217
  39. KEFZOL [Concomitant]
     Active Substance: CEFAZOLIN SODIUM
     Dates: start: 20231218, end: 20231221
  40. CALCIPARINE [Concomitant]
     Active Substance: HEPARIN CALCIUM
     Indication: Thrombophlebitis
     Dosage: 5000 IE/ 0.2 ML
     Route: 058
     Dates: start: 20231122, end: 20231221
  41. HEPARIN [Concomitant]
     Active Substance: HEPARIN SODIUM
     Indication: Product used for unknown indication
     Dosage: 20^000 IE/ 48 ML
     Dates: start: 20231206, end: 20231206
  42. HUMAN RED BLOOD CELL [Concomitant]
     Active Substance: HUMAN RED BLOOD CELL
     Indication: Anaemia
     Dates: start: 20231201, end: 20231221
  43. METOLAZONE [Concomitant]
     Active Substance: METOLAZONE
     Indication: Cardiac failure
     Dates: start: 20231128, end: 20231221
  44. POTASSIUM BICARBONATE\POTASSIUM CITRATE [Concomitant]
     Active Substance: POTASSIUM BICARBONATE\POTASSIUM CITRATE
     Indication: Product used for unknown indication
     Dates: start: 20231210, end: 20231221
  45. PANTOPRAZOLE SODIUM [Concomitant]
     Active Substance: PANTOPRAZOLE SODIUM
     Indication: Product used for unknown indication
     Dates: start: 20231205, end: 20231221
  46. MONOVO [Concomitant]
     Indication: Product used for unknown indication
     Dosage: (1MG/G)
     Dates: start: 20231125, end: 20231205
  47. KCL HAUSMANN [Concomitant]
     Indication: Product used for unknown indication
     Dates: start: 20231209, end: 20231210
  48. AMOXICILLIN\CLAVULANATE POTASSIUM [Concomitant]
     Active Substance: AMOXICILLIN\CLAVULANATE POTASSIUM
     Indication: Product used for unknown indication
     Dates: start: 20231203, end: 20231214
  49. PIPERACILLINE/TAZOBACTAM SANDOZ [Concomitant]
     Indication: Product used for unknown indication
     Dates: start: 20231203, end: 20231203
  50. PIPERACILLINE/TAZOBACTAM SANDOZ [Concomitant]
     Dates: start: 20231203, end: 20231203

REACTIONS (7)
  - Cardiac failure [Recovering/Resolving]
  - Myoclonus [Recovering/Resolving]
  - Immune-mediated dermatitis [Recovering/Resolving]
  - Off label use [Unknown]
  - Superficial vein thrombosis [Unknown]
  - Staphylococcal bacteraemia [Unknown]
  - Enterococcal bacteraemia [Unknown]

NARRATIVE: CASE EVENT DATE: 20230601
